FAERS Safety Report 12391852 (Version 1)
Quarter: 2016Q2

REPORT INFORMATION
  Report Type: Spontaneous
  Country: HU (occurrence: HU)
  Receive Date: 20160523
  Receipt Date: 20160523
  Transmission Date: 20160815
  Serious: Yes (Other)
  Sender: FDA-Public Use
  Company Number: HU-AMGEN-HUNSP2016064046

PATIENT
  Sex: Male

DRUGS (1)
  1. XGEVA [Suspect]
     Active Substance: DENOSUMAB
     Indication: PROSTATE CANCER
     Dosage: UNK
     Route: 065

REACTIONS (1)
  - Osteonecrosis of jaw [Unknown]
